FAERS Safety Report 25672294 (Version 1)
Quarter: 2025Q3

REPORT INFORMATION
  Report Type: Spontaneous
  Country: US (occurrence: US)
  Receive Date: 20250812
  Receipt Date: 20250812
  Transmission Date: 20251020
  Serious: No
  Sender: MISSION PHARMACAL COMPANY
  Company Number: US-Mission Pharmacal Company-2182363

PATIENT
  Age: 62 Year
  Sex: Female

DRUGS (2)
  1. POTASSIUM CITRATE [Suspect]
     Active Substance: POTASSIUM CITRATE
     Indication: Cystinuria
  2. THIOLA EC [Concomitant]
     Active Substance: TIOPRONIN
     Dates: start: 20250618, end: 20250806

REACTIONS (2)
  - Taste disorder [Unknown]
  - Ageusia [Unknown]
